FAERS Safety Report 18855701 (Version 1)
Quarter: 2021Q1

REPORT INFORMATION
  Report Type: Spontaneous
  Country: US (occurrence: US)
  Receive Date: 20210205
  Receipt Date: 20210205
  Transmission Date: 20210420
  Serious: Yes (Death, Other)
  Sender: FDA-Public Use
  Company Number: US-GILEAD-2021-0516100

PATIENT
  Age: 79 Year
  Sex: Male

DRUGS (1)
  1. TECARTUS [Suspect]
     Active Substance: BREXUCABTAGENE AUTOLEUCEL
     Indication: MANTLE CELL LYMPHOMA
     Dosage: UNK UNK, ONCE (ESTIMATED DATE OF INFUSION BETWEEN MID?NOV?DEC?2020)
     Route: 042

REACTIONS (4)
  - Encephalopathy [Fatal]
  - Neurotoxicity [Fatal]
  - Coma [Unknown]
  - Cytokine release syndrome [Unknown]

NARRATIVE: CASE EVENT DATE: 2020
